FAERS Safety Report 13664233 (Version 1)
Quarter: 2017Q2

REPORT INFORMATION
  Report Type: Spontaneous
  Country: JP (occurrence: JP)
  Receive Date: 20170619
  Receipt Date: 20170619
  Transmission Date: 20170830
  Serious: Yes (Death, Other)
  Sender: FDA-Public Use
  Company Number: JP-PFIZER INC-2017258999

PATIENT

DRUGS (1)
  1. ANAEMETRO [Suspect]
     Active Substance: METRONIDAZOLE
     Dosage: 1500 MG, DAILY

REACTIONS (2)
  - Mediastinitis [Unknown]
  - Multiple organ dysfunction syndrome [Fatal]
